FAERS Safety Report 18171272 (Version 5)
Quarter: 2020Q3

REPORT INFORMATION
  Report Type: Spontaneous
  Country: US (occurrence: US)
  Receive Date: 20200819
  Receipt Date: 20200916
  Transmission Date: 20201103
  Serious: Yes (Hospitalization)
  Sender: FDA-Public Use
  Company Number: US-UNITED THERAPEUTICS-UNT-2020-012034

PATIENT
  Age: 41 Year
  Sex: Female
  Weight: 107.03 kg

DRUGS (4)
  1. REMODULIN [Suspect]
     Active Substance: TREPROSTINIL
     Indication: PULMONARY ARTERIAL HYPERTENSION
     Dosage: UNK, CONTINUING
     Route: 041
     Dates: start: 20200303
  2. REMODULIN [Suspect]
     Active Substance: TREPROSTINIL
     Dosage: 0.035 ?G/KG, CONTINUING
     Route: 041
     Dates: start: 2020
  3. SILDENAFIL CITRATE. [Concomitant]
     Active Substance: SILDENAFIL CITRATE
     Indication: PRODUCT USED FOR UNKNOWN INDICATION
     Dosage: UNK
     Route: 065
  4. REMODULIN [Suspect]
     Active Substance: TREPROSTINIL
     Dosage: 0.03375 ?G/KG, CONTINUING
     Route: 041
     Dates: start: 2020

REACTIONS (4)
  - Catheter site erythema [Not Recovered/Not Resolved]
  - Lower respiratory tract infection [Recovering/Resolving]
  - Catheter site pain [Unknown]
  - Catheter site discharge [Not Recovered/Not Resolved]

NARRATIVE: CASE EVENT DATE: 2020
